FAERS Safety Report 9726154 (Version 2)
Quarter: 2013Q4

REPORT INFORMATION
  Report Type: Spontaneous
  Country: KR (occurrence: KR)
  Receive Date: 20131203
  Receipt Date: 20131212
  Transmission Date: 20140711
  Serious: Yes (Other)
  Sender: FDA-Public Use
  Company Number: KR-SA-2013SA123818

PATIENT
  Age: 15 Year
  Sex: Female
  Weight: 25 kg

DRUGS (1)
  1. MYOZYME [Suspect]
     Indication: GLYCOGEN STORAGE DISEASE TYPE II
     Route: 042
     Dates: start: 20131010

REACTIONS (2)
  - Wolff-Parkinson-White syndrome [Unknown]
  - Arrhythmia [Recovered/Resolved]
